FAERS Safety Report 16787511 (Version 2)
Quarter: 2019Q3

REPORT INFORMATION
  Report Type: Spontaneous
  Country: US (occurrence: US)
  Receive Date: 20190909
  Receipt Date: 20190924
  Transmission Date: 20191005
  Serious: Yes (Hospitalization, Other)
  Sender: FDA-Public Use
  Company Number: US-CATALYST PHARMACEUTICALS, INC-2019CAT00371

PATIENT
  Age: 88 Year
  Sex: Male
  Weight: 77.1 kg

DRUGS (4)
  1. FIRDAPSE [Suspect]
     Active Substance: AMIFAMPRIDINE
     Dosage: 5 MG, 3X/DAY
     Route: 048
     Dates: start: 201908, end: 201909
  2. REGLAN [Suspect]
     Active Substance: METOCLOPRAMIDE HYDROCHLORIDE
     Dosage: UNK
     Dates: start: 20190404, end: 201904
  3. INTRAVENOUS CONTRAST [Suspect]
     Active Substance: UNSPECIFIED INGREDIENT
     Dosage: UNK
     Dates: start: 20190821, end: 20190821
  4. FIRDAPSE [Suspect]
     Active Substance: AMIFAMPRIDINE
     Indication: MYASTHENIC SYNDROME
     Dosage: 5 MG, 2X/DAY (TITRATING PHASE)
     Route: 048
     Dates: start: 201908, end: 201908

REACTIONS (11)
  - Infusion site extravasation [Recovering/Resolving]
  - Thrombosis [Recovered/Resolved]
  - Pain in extremity [Recovered/Resolved]
  - Gastrooesophageal reflux disease [Recovering/Resolving]
  - Haematoma [Unknown]
  - Limb discomfort [Recovered/Resolved]
  - Oesophageal dilatation [Recovering/Resolving]
  - Swelling [Recovering/Resolving]
  - Tachycardia [Unknown]
  - Wound [Not Recovered/Not Resolved]
  - Dyspnoea [Recovering/Resolving]

NARRATIVE: CASE EVENT DATE: 2019
